FAERS Safety Report 8516407-7 (Version None)
Quarter: 2012Q3

REPORT INFORMATION
  Report Type: 
  Country: None (occurrence: None)
  Receive Date: 20120718
  Receipt Date: 20120710
  Transmission Date: 20120928
  Serious: No
  Sender: FDA-Public Use
  Company Number: US-BIOGENIDEC-2012BI024766

PATIENT
  Sex: Female

DRUGS (2)
  1. AVONEX [Suspect]
     Route: 030
     Dates: start: 20120619
  2. AVONEX [Suspect]
     Indication: MULTIPLE SCLEROSIS
     Route: 030
     Dates: start: 20020101, end: 20070101

REACTIONS (7)
  - PLANTAR FASCIITIS [None]
  - EXOSTOSIS [None]
  - FEELING COLD [None]
  - FATIGUE [None]
  - MUSCULAR WEAKNESS [None]
  - THYROID DISORDER [None]
  - WEIGHT INCREASED [None]
